FAERS Safety Report 20631773 (Version 1)
Quarter: 2022Q1

REPORT INFORMATION
  Report Type: Report from Study
  Country: US (occurrence: US)
  Receive Date: 20220324
  Receipt Date: 20220324
  Transmission Date: 20220423
  Serious: Yes (Hospitalization)
  Sender: FDA-Public Use
  Company Number: US-ABBVIE-21K-163-3922881-00

PATIENT
  Sex: Male
  Weight: 104.42 kg

DRUGS (6)
  1. HUMIRA [Suspect]
     Active Substance: ADALIMUMAB
     Indication: Crohn^s disease
     Dosage: DAY 1
     Route: 058
     Dates: start: 20210303, end: 20210303
  2. HUMIRA [Suspect]
     Active Substance: ADALIMUMAB
     Dosage: DAY 15
     Route: 058
     Dates: start: 20210317, end: 20210317
  3. HUMIRA [Suspect]
     Active Substance: ADALIMUMAB
     Indication: Crohn^s disease
     Route: 058
     Dates: start: 20210331
  4. HUMIRA [Suspect]
     Active Substance: ADALIMUMAB
     Route: 058
     Dates: start: 202202, end: 20220302
  5. COVID-19 VACCINE NOS [Suspect]
     Active Substance: COVID-19 VACCINE NOS
     Indication: COVID-19 immunisation
     Dosage: DOSE 1
     Route: 030
  6. COVID-19 VACCINE NOS [Suspect]
     Active Substance: COVID-19 VACCINE NOS
     Dosage: DOSE 2
     Route: 030
     Dates: start: 20210518, end: 20210518

REACTIONS (21)
  - Hernia [Unknown]
  - Ileostomy closure [Unknown]
  - Intestinal operation [Unknown]
  - Hospitalisation [Unknown]
  - Incision site pain [Unknown]
  - Gastrointestinal sounds abnormal [Recovering/Resolving]
  - Stoma site pain [Unknown]
  - Intestinal cyst [Unknown]
  - Loss of personal independence in daily activities [Unknown]
  - Blood creatinine increased [Recovered/Resolved]
  - Inflammation [Unknown]
  - Blood creatinine increased [Unknown]
  - Haematocrit decreased [Unknown]
  - Anaemia [Unknown]
  - Flatulence [Unknown]
  - Arthralgia [Recovered/Resolved]
  - Myalgia [Unknown]
  - Fungal infection [Unknown]
  - Crohn^s disease [Recovering/Resolving]
  - COVID-19 [Unknown]
  - Diarrhoea [Unknown]

NARRATIVE: CASE EVENT DATE: 20210101
